FAERS Safety Report 9285170 (Version 1)
Quarter: 2013Q2

REPORT INFORMATION
  Report Type: Spontaneous
  Country: US (occurrence: US)
  Receive Date: 20130513
  Receipt Date: 20130513
  Transmission Date: 20140414
  Serious: Yes (Hospitalization, Other)
  Sender: FDA-Public Use
  Company Number: US-SANOFI-AVENTIS-2013SA047024

PATIENT
  Age: 59 Year
  Sex: Male

DRUGS (5)
  1. LANTUS SOLOSTAR [Suspect]
     Indication: TYPE 2 DIABETES MELLITUS
     Dosage: PRODUCT STARTED 1-2 YEARS AGO DOSE:100 UNIT(S)
  2. SOLOSTAR [Suspect]
     Indication: TYPE 2 DIABETES MELLITUS
     Dosage: PRODUCT STARTED 1-2 YEARS AGO
  3. HUMALOG [Concomitant]
     Dosage: 30-50 UNITS
  4. ALL OTHER THERAPEUTIC PRODUCTS [Concomitant]
  5. ALL OTHER THERAPEUTIC PRODUCTS [Concomitant]

REACTIONS (6)
  - Loss of consciousness [Unknown]
  - Renal failure [Unknown]
  - Proteinuria [Unknown]
  - Blood urine present [Unknown]
  - Injection site pain [Unknown]
  - Incorrect storage of drug [Unknown]
